FAERS Safety Report 8132127-5 (Version None)
Quarter: 2012Q1

REPORT INFORMATION
  Report Type: 
  Country: None (occurrence: None)
  Receive Date: 20120213
  Receipt Date: 20120209
  Transmission Date: 20120608
  Serious: No
  Sender: FDA-Public Use
  Company Number: US-PFIZER INC-2012037277

PATIENT
  Sex: Female
  Weight: 66.213 kg

DRUGS (11)
  1. LEXAPRO [Concomitant]
     Indication: DEPRESSION
     Dosage: 20 MG, DAILY
  2. ASPIRIN [Concomitant]
     Indication: PLEURAL EFFUSION
     Dosage: 81 MG, DAILY
  3. ASPIRIN [Concomitant]
     Indication: CARDIAC MURMUR
  4. CHANTIX [Suspect]
     Indication: SMOKING CESSATION THERAPY
     Dosage: 1 MG, UNK
     Route: 048
  5. CHANTIX [Suspect]
     Dosage: 0.5 MG, DAILY
     Route: 048
     Dates: start: 20120208
  6. NEXIUM [Concomitant]
     Indication: GASTROOESOPHAGEAL REFLUX DISEASE
  7. VERAMYST [Concomitant]
     Indication: SINUS DISORDER
     Dosage: UNK. AS NEEDED
     Route: 045
  8. VITAMIN D [Concomitant]
     Indication: OSTEOPOROSIS
     Dosage: UNK, WEEKLY
  9. NEXIUM [Concomitant]
     Indication: ULCER
     Dosage: 40 MG, DAILY
  10. FLEXERIL [Concomitant]
     Indication: ARTHRITIS
     Dosage: 5 MG, AS NEEDED
  11. NEXIUM [Concomitant]
     Indication: FLATULENCE

REACTIONS (1)
  - INCORRECT DOSE ADMINISTERED [None]
